FAERS Safety Report 4808914-5 (Version None)
Quarter: 2005Q4

REPORT INFORMATION
  Report Type: 
  Country: None (occurrence: None)
  Receive Date: 20051021
  Receipt Date: 20020627
  Transmission Date: 20060501
  Serious: Yes (Hospitalization)
  Sender: FDA-Public Use
  Company Number: DE_020709057

PATIENT
  Age: 55 Year
  Sex: Male

DRUGS (3)
  1. ZYPREXA [Suspect]
     Indication: DELUSIONAL DISORDER, PERSECUTORY TYPE
     Dosage: 10 MG/DAY
     Dates: start: 20020620
  2. FLUANXOL (FLUPENTIXOL DIHYDROCHLORIDE) [Concomitant]
  3. LORAZEPAM [Concomitant]

REACTIONS (5)
  - ANAEMIA [None]
  - HYPOTENSION [None]
  - PULMONARY EMBOLISM [None]
  - PYREXIA [None]
  - TACHYCARDIA [None]
